FAERS Safety Report 4565776-1 (Version None)
Quarter: 2005Q1

REPORT INFORMATION
  Report Type: 
  Country: None (occurrence: None)
  Receive Date: 20050126
  Receipt Date: 20050120
  Transmission Date: 20050727
  Serious: Yes (Death)
  Sender: FDA-Public Use
  Company Number: 163-20785-05010393

PATIENT
  Age: 47 Year
  Sex: Male

DRUGS (1)
  1. THALOMID [Suspect]
     Indication: MALIGNANT MELANOMA
     Dosage: 50 MG, DAILY, ORAL
     Route: 048
     Dates: start: 20041207, end: 20041218

REACTIONS (1)
  - CARDIO-RESPIRATORY ARREST [None]
